FAERS Safety Report 9970792 (Version 1)
Quarter: 2014Q1

REPORT INFORMATION
  Report Type: Report from Study
  Country: US (occurrence: US)
  Receive Date: 20140306
  Receipt Date: 20140306
  Transmission Date: 20141002
  Serious: No
  Sender: FDA-Public Use
  Company Number: US-ABBVIE-13P-163-1150707-00

PATIENT
  Age: 33 Year
  Sex: Female

DRUGS (7)
  1. HUMIRA [Suspect]
     Indication: CROHN^S DISEASE
     Dates: start: 20130620
  2. BENTYL [Concomitant]
     Indication: IRRITABLE BOWEL SYNDROME
  3. PROPANOLOL [Concomitant]
     Indication: MIGRAINE PROPHYLAXIS
  4. PROPANOLOL [Concomitant]
     Indication: TACHYCARDIA
  5. AMITRIPTYLINE [Concomitant]
     Indication: MIGRAINE PROPHYLAXIS
     Dosage: AT BEDTIME
  6. ZOMIG [Concomitant]
     Indication: MIGRAINE
  7. PROMETHAZINE [Concomitant]
     Indication: GASTROINTESTINAL PAIN
     Dosage: EVERY 6 HOURS

REACTIONS (1)
  - Sinusitis [Not Recovered/Not Resolved]
